FAERS Safety Report 8563544-7 (Version None)
Quarter: 2012Q3

REPORT INFORMATION
  Report Type: 
  Country: None (occurrence: None)
  Receive Date: 20120803
  Receipt Date: 20120724
  Transmission Date: 20120928
  Serious: Yes (Other)
  Sender: FDA-Public Use
  Company Number: AU-BRISTOL-MYERS SQUIBB COMPANY-16802951

PATIENT
  Age: 44 Year
  Sex: Female

DRUGS (3)
  1. FLUVOXAMINE MALEATE [Concomitant]
     Route: 048
  2. ORENCIA [Suspect]
     Dosage: DUE ON 13JUL12
  3. FLUOXETINE HCL [Concomitant]
     Route: 048

REACTIONS (2)
  - INTENTIONAL SELF-INJURY [None]
  - THERMAL BURN [None]
